FAERS Safety Report 9691076 (Version 3)
Quarter: 2013Q4

REPORT INFORMATION
  Report Type: Report from Study
  Country: US (occurrence: US)
  Receive Date: 20131115
  Receipt Date: 20131119
  Transmission Date: 20140711
  Serious: Yes (Hospitalization)
  Sender: FDA-Public Use
  Company Number: US-ACTELION-A-US2013-86063

PATIENT
  Age: 65 Year
  Sex: Female

DRUGS (5)
  1. TRACLEER [Suspect]
     Indication: PULMONARY ARTERIAL HYPERTENSION
     Dosage: 125 MG, BID
     Route: 048
     Dates: start: 20130529
  2. TRACLEER [Suspect]
     Dosage: 62.5 MG, BID
     Route: 048
     Dates: start: 20130418, end: 20130528
  3. VENTAVIS [Suspect]
     Indication: PULMONARY ARTERIAL HYPERTENSION
     Dosage: 5 UNK, 6/DAY
     Route: 055
     Dates: start: 20130509
  4. ADCIRCA [Concomitant]
  5. OXYGEN [Concomitant]

REACTIONS (6)
  - Haemoglobin abnormal [Recovering/Resolving]
  - Epistaxis [Unknown]
  - Cautery to nose [Unknown]
  - Sleep disorder [Unknown]
  - Neck pain [Unknown]
  - Transfusion [Recovering/Resolving]
